FAERS Safety Report 11935188 (Version 1)
Quarter: 2016Q1

REPORT INFORMATION
  Report Type: Spontaneous
  Country: US (occurrence: US)
  Receive Date: 20160121
  Receipt Date: 20160121
  Transmission Date: 20160526
  Serious: No
  Sender: FDA-Public Use
  Company Number: US-OTSUKA-2015_013444

PATIENT
  Sex: Female

DRUGS (5)
  1. BUPROPION. [Concomitant]
     Active Substance: BUPROPION
     Indication: PRODUCT USED FOR UNKNOWN INDICATION
     Dosage: 150 MG, UNK
     Route: 065
  2. LAMICTAL [Concomitant]
     Active Substance: LAMOTRIGINE
     Indication: PRODUCT USED FOR UNKNOWN INDICATION
     Dosage: UNK
     Route: 065
  3. PERPHENAZINE. [Concomitant]
     Active Substance: PERPHENAZINE
     Indication: PRODUCT USED FOR UNKNOWN INDICATION
     Dosage: UNK
     Route: 065
  4. REXULTI [Suspect]
     Active Substance: BREXPIPRAZOLE
     Indication: SCHIZOAFFECTIVE DISORDER
     Dosage: 0.5 MG, ONCE DAILY
     Route: 065
  5. REXULTI [Suspect]
     Active Substance: BREXPIPRAZOLE
     Dosage: 1 MG, ONCE DAILY
     Route: 065

REACTIONS (4)
  - Product use issue [Unknown]
  - Skin burning sensation [Recovered/Resolved]
  - Photosensitivity reaction [Recovered/Resolved]
  - Temperature intolerance [Recovered/Resolved]
